FAERS Safety Report 5757964-3 (Version None)
Quarter: 2008Q2

REPORT INFORMATION
  Report Type: 
  Country: None (occurrence: None)
  Receive Date: 20080602
  Receipt Date: 20080602
  Transmission Date: 20081010
  Serious: No
  Sender: FDA-Public Use
  Company Number: None

PATIENT
  Age: 31 Year
  Sex: Male
  Weight: 83.9154 kg

DRUGS (1)
  1. CHANTIX [Suspect]
     Indication: SMOKING CESSATION THERAPY
     Dosage: 1 MG  2X DAILY PO  (DURATION: 7 TO 8 WEEKS)
     Route: 048

REACTIONS (8)
  - AGGRESSION [None]
  - AMNESIA [None]
  - ANGER [None]
  - DEPRESSION [None]
  - FEELINGS OF WORTHLESSNESS [None]
  - MOOD SWINGS [None]
  - THINKING ABNORMAL [None]
  - VERBAL ABUSE [None]
